FAERS Safety Report 8341340-3 (Version None)
Quarter: 2012Q2

REPORT INFORMATION
  Report Type: 
  Country: None (occurrence: None)
  Receive Date: 20120507
  Receipt Date: 20120501
  Transmission Date: 20120825
  Serious: Yes (Death, Hospitalization)
  Sender: FDA-Public Use
  Company Number: US-CELGENEUS-163-21880-12022080

PATIENT
  Sex: Female

DRUGS (23)
  1. ZOMETA [Concomitant]
     Route: 065
  2. DEXAMETHASONE [Concomitant]
     Route: 065
  3. TYLENOL (CAPLET) [Concomitant]
     Indication: PAIN
     Dosage: 650
     Route: 065
  4. PEPCID [Concomitant]
     Dosage: 20
     Route: 048
  5. COUMADIN [Concomitant]
     Route: 065
  6. MECLIZINE HCL [Concomitant]
     Dosage: 12.5 MILLIGRAM
     Route: 065
  7. ALBUTEROL SULFATE [Concomitant]
     Route: 065
  8. ZESTRIL [Concomitant]
     Indication: HYPERTENSION
     Dosage: 5 MILLIGRAM
     Route: 048
  9. SINGULAIR [Concomitant]
     Route: 065
  10. PROVENTIL [Concomitant]
     Indication: ASTHMA
     Dosage: 2 PUFFS
     Route: 048
  11. MULTI-VITAMINS [Concomitant]
     Route: 065
  12. NEURONTIN [Concomitant]
     Route: 065
  13. REGLAN [Concomitant]
     Dosage: 10 MILLIGRAM
     Route: 065
  14. METFORMIN HCL [Concomitant]
     Route: 065
  15. GLIPIZIDE [Concomitant]
     Route: 065
  16. HEPARIN [Concomitant]
     Indication: PROPHYLAXIS
     Route: 065
  17. LEVEMIR [Concomitant]
     Dosage: 10 UNITS
     Route: 048
  18. REVLIMID [Suspect]
     Dosage: 5 MILLIGRAM
     Route: 048
     Dates: start: 20120129, end: 20120309
  19. CLONIDINE HCL [Concomitant]
     Route: 065
  20. CARDIZEM [Concomitant]
     Indication: HYPERTENSION
     Dosage: 180 MILLIGRAM
     Route: 048
  21. REMERON [Concomitant]
     Dosage: 50 MILLIGRAM
     Route: 065
  22. IBUPROFEN (ADVIL) [Concomitant]
     Indication: PAIN
     Dosage: 200 MILLIGRAM
     Route: 065
  23. IMODIUM A-D [Concomitant]
     Indication: PAIN
     Dosage: 2 TABLET
     Route: 048

REACTIONS (5)
  - ASTHENIA [None]
  - HALLUCINATION [None]
  - URINARY TRACT INFECTION [None]
  - PANCYTOPENIA [None]
  - DEATH [None]
